FAERS Safety Report 6015457-2 (Version None)
Quarter: 2008Q4

REPORT INFORMATION
  Report Type: 
  Country: None (occurrence: None)
  Receive Date: 20081222
  Receipt Date: 20081218
  Transmission Date: 20090506
  Serious: Yes (Death, Hospitalization)
  Sender: FDA-Public Use
  Company Number: PHHY2008BR26665

PATIENT
  Age: 87 Year
  Sex: Female

DRUGS (5)
  1. EXFORGE [Suspect]
     Indication: BLOOD PRESSURE ABNORMAL
     Dosage: 1 DF, QD
     Route: 048
  2. OSTAC [Concomitant]
     Indication: PROPHYLAXIS
     Dosage: 1 DF, QMO
     Route: 042
  3. ARIMIDEX [Concomitant]
     Indication: FRACTURE
     Dosage: UNK
     Dates: start: 20030101
  4. ARIMIDEX [Concomitant]
     Indication: NEOPLASM MALIGNANT
  5. CALTRATE [Concomitant]
     Indication: OSTEOPOROSIS
     Dosage: UNK
     Dates: start: 19980101

REACTIONS (3)
  - CARDIAC ARREST [None]
  - CEREBROVASCULAR ACCIDENT [None]
  - CONVULSION [None]
